FAERS Safety Report 6375166-7 (Version None)
Quarter: 2009Q3

REPORT INFORMATION
  Report Type: 
  Country: None (occurrence: None)
  Receive Date: 20090924
  Receipt Date: 20090915
  Transmission Date: 20100115
  Serious: Yes (Other)
  Sender: FDA-Public Use
  Company Number: US-ASTRAZENECA-2009SE13389

PATIENT
  Age: 38 Year
  Sex: Female
  Weight: 97 kg

DRUGS (2)
  1. ROPIVACAINE WITH EPINEPHRINE [Suspect]
     Indication: NERVE BLOCK
     Dosage: 1:200.000
  2. ROPIVACAINE WITH EPINEPHRINE [Suspect]
     Dosage: 1:200.000

REACTIONS (1)
  - PHRENIC NERVE PARALYSIS [None]
